FAERS Safety Report 17353638 (Version 1)
Quarter: 2020Q1

REPORT INFORMATION
  Report Type: Spontaneous
  Country: US (occurrence: US)
  Receive Date: 20200131
  Receipt Date: 20200131
  Transmission Date: 20200409
  Serious: Yes (Other)
  Sender: FDA-Public Use
  Company Number: US-BAYER-2020-012262

PATIENT
  Age: 23 Year
  Sex: Female

DRUGS (1)
  1. KYLEENA [Suspect]
     Active Substance: LEVONORGESTREL
     Indication: CONTRACEPTION
     Dosage: 17.5 MCG/24HR, CONT
     Route: 015
     Dates: start: 20191121, end: 20191219

REACTIONS (3)
  - Device breakage [None]
  - Genital haemorrhage [None]
  - Polycystic ovaries [None]

NARRATIVE: CASE EVENT DATE: 20191219
